FAERS Safety Report 8239561-3 (Version None)
Quarter: 2012Q1

REPORT INFORMATION
  Report Type: 
  Country: None (occurrence: None)
  Receive Date: 20120326
  Receipt Date: 20120314
  Transmission Date: 20120608
  Serious: Yes (Other)
  Sender: FDA-Public Use
  Company Number: UCM201112-000081

PATIENT
  Age: 71 Year
  Weight: 84 kg

DRUGS (4)
  1. BISOPROLOL FUMARATE [Suspect]
     Indication: HYPERTENSION
     Dosage: 3.75 MG, ONE TIME DAILY , 3.75 MG MORNING, 1.875 MG EVENING
  2. RIFAMPICIN [Suspect]
     Indication: TUBERCULOSIS BLADDER
     Dosage: 600 MG, ONCE DAILY
  3. ISONIAZID [Suspect]
     Indication: TUBERCULOSIS BLADDER
     Dosage: 300 MG, THREE TIMES DAILY
  4. ETHAMBUTOL HYDROCHLORIDE [Suspect]
     Indication: TUBERCULOSIS BLADDER
     Dosage: 400 MG, THREE TIMES DAILY

REACTIONS (5)
  - VENTRICULAR EXTRASYSTOLES [None]
  - BLOOD PRESSURE INCREASED [None]
  - DRUG INTERACTION [None]
  - DRUG LEVEL DECREASED [None]
  - LOSS OF CONSCIOUSNESS [None]
